FAERS Safety Report 7364365-3 (Version None)
Quarter: 2011Q1

REPORT INFORMATION
  Report Type: 
  Country: None (occurrence: None)
  Receive Date: 20110321
  Receipt Date: 20110218
  Transmission Date: 20110831
  Serious: No
  Sender: FDA-Public Use
  Company Number: US-ALLERGAN-1102427US

PATIENT
  Age: 20 Year
  Sex: Female

DRUGS (1)
  1. ZYMAXID [Suspect]
     Indication: EYE DISORDER
     Dosage: 1 GTT, Q1HR
     Route: 047

REACTIONS (1)
  - DRUG INEFFECTIVE [None]
